FAERS Safety Report 17097716 (Version 1)
Quarter: 2019Q4

REPORT INFORMATION
  Report Type: Spontaneous
  Country: FR (occurrence: FR)
  Receive Date: 20191202
  Receipt Date: 20191202
  Transmission Date: 20200122
  Serious: Yes (Other)
  Sender: FDA-Public Use
  Company Number: NVSC2019FR047992

PATIENT
  Age: 47 Year
  Sex: Female

DRUGS (3)
  1. STABLON [Suspect]
     Active Substance: TIANEPTINE
     Indication: DRUG USE DISORDER
     Dosage: 21 DF, ONCE/SINGLE
     Route: 048
     Dates: start: 20190830
  2. ALPRAZOLAM. [Suspect]
     Active Substance: ALPRAZOLAM
     Indication: DRUG USE DISORDER
     Dosage: 9 MG, ONCE/SINGLE
     Route: 048
     Dates: start: 20190830
  3. STILNOX [Concomitant]
     Active Substance: ZOLPIDEM TARTRATE
     Indication: PRODUCT USED FOR UNKNOWN INDICATION
     Route: 065

REACTIONS (3)
  - Drug use disorder [Not Recovered/Not Resolved]
  - Akathisia [Recovering/Resolving]
  - Somnolence [Recovering/Resolving]

NARRATIVE: CASE EVENT DATE: 20190830
